FAERS Safety Report 5737594-X (Version None)
Quarter: 2008Q2

REPORT INFORMATION
  Report Type: 
  Country: None (occurrence: None)
  Receive Date: 20080507
  Receipt Date: 20080228
  Transmission Date: 20081010
  Serious: Yes (Hospitalization)
  Sender: FDA-Public Use
  Company Number: 550941

PATIENT
  Age: 60 Year
  Sex: Male

DRUGS (8)
  1. NAPROXEN [Suspect]
     Indication: OSTEOARTHRITIS
     Dosage: 500 MG 2 PER DAY
  2. METFORMIN HCL [Concomitant]
  3. PRAVASTATIN SODIUM [Concomitant]
  4. ALTACE [Concomitant]
  5. PREVACID [Concomitant]
  6. RAMIPRIL [Concomitant]
  7. VIOXX [Concomitant]
  8. ACETAMINOPHEN [Concomitant]

REACTIONS (1)
  - GASTROINTESTINAL HAEMORRHAGE [None]
